FAERS Safety Report 4539766-9 (Version None)
Quarter: 2004Q4

REPORT INFORMATION
  Report Type: 
  Country: None (occurrence: None)
  Receive Date: 20041222
  Receipt Date: 20041210
  Transmission Date: 20050328
  Serious: Yes (Death, Other)
  Sender: FDA-Public Use
  Company Number: 2004064324

PATIENT
  Sex: Male
  Weight: 104.3273 kg

DRUGS (11)
  1. NEURONTIN [Suspect]
     Indication: ILL-DEFINED DISORDER
     Dosage: 1200 MG (600 MG, 2 IN 1 D)
     Dates: start: 20030127, end: 20030501
  2. PAROXETINE HCL [Suspect]
     Indication: ILL-DEFINED DISORDER
     Dates: start: 20021216, end: 20030101
  3. PAROXETINE HCL [Concomitant]
  4. RISPERDAL [Concomitant]
  5. HYDROXYZINE EMBONATE (HYDROXYZINE EMBONATE) [Concomitant]
  6. VENLAFAXINE HCL [Concomitant]
  7. QUETIAPINE FUMARATE (QUETIAPINE FUMARATE) [Concomitant]
  8. FAMOTIDINE [Concomitant]
  9. NARINE REPETABS (LORATADINE, PSEUDOEPHEDRINE SULFATE) [Concomitant]
  10. LANSOPRAZOLE [Concomitant]
  11. CLARITHROMYCIN [Concomitant]

REACTIONS (20)
  - AKATHISIA [None]
  - ANGER [None]
  - ANXIETY [None]
  - ASTHENIA [None]
  - COMPLETED SUICIDE [None]
  - DECREASED INTEREST [None]
  - DISTURBANCE IN ATTENTION [None]
  - DRUG INEFFECTIVE [None]
  - FEELING ABNORMAL [None]
  - HALLUCINATION, AUDITORY [None]
  - INSOMNIA [None]
  - IRRITABILITY [None]
  - MEMORY IMPAIRMENT [None]
  - MOOD SWINGS [None]
  - OBSESSIVE-COMPULSIVE DISORDER [None]
  - OCHLOPHOBIA [None]
  - PANIC ATTACK [None]
  - SELF-MEDICATION [None]
  - STRESS SYMPTOMS [None]
  - TREATMENT NONCOMPLIANCE [None]
